FAERS Safety Report 11895273 (Version 1)
Quarter: 2016Q1

REPORT INFORMATION
  Report Type: Report from Study
  Country: FR (occurrence: FR)
  Receive Date: 20160107
  Receipt Date: 20160107
  Transmission Date: 20160526
  Serious: Yes (Death, Other)
  Sender: FDA-Public Use
  Company Number: FR-CELGENE-056-21880-14084095

PATIENT

DRUGS (1)
  1. REVLIMID [Suspect]
     Active Substance: LENALIDOMIDE
     Indication: B-CELL LYMPHOMA
     Route: 048
     Dates: end: 20130112

REACTIONS (3)
  - Hepatocellular injury [Unknown]
  - Gamma-glutamyltransferase increased [Unknown]
  - B-cell lymphoma [Fatal]

NARRATIVE: CASE EVENT DATE: 20130225
